FAERS Safety Report 4774801-4 (Version None)
Quarter: 2005Q3

REPORT INFORMATION
  Report Type: 
  Country: None (occurrence: None)
  Receive Date: 20050919
  Receipt Date: 20050906
  Transmission Date: 20060218
  Serious: Yes (Hospitalization)
  Sender: FDA-Public Use
  Company Number: 2005124478

PATIENT
  Age: 52 Year
  Sex: Female

DRUGS (1)
  1. XANAX [Suspect]
     Indication: ILL-DEFINED DISORDER
     Dosage: 2.5 MG (0.25 MG)

REACTIONS (3)
  - INTENTIONAL MISUSE [None]
  - OVERDOSE [None]
  - SUICIDE ATTEMPT [None]
